FAERS Safety Report 14706295 (Version 3)
Quarter: 2018Q2

REPORT INFORMATION
  Report Type: Spontaneous
  Country: FR (occurrence: FR)
  Receive Date: 20180402
  Receipt Date: 20180515
  Transmission Date: 20180711
  Serious: Yes (Other)
  Sender: FDA-Public Use
  Company Number: FR-MYLANLABS-2018M1019086

PATIENT
  Age: 3 Year
  Sex: Male

DRUGS (6)
  1. ABACAVIR. [Suspect]
     Active Substance: ABACAVIR
     Indication: HIV TEST POSITIVE
     Dosage: UNK
  2. DARUNAVIR W/RITONAVIR [Concomitant]
     Active Substance: DARUNAVIR\RITONAVIR
     Indication: HIV INFECTION
     Dosage: UNK
  3. ABACAVIR. [Suspect]
     Active Substance: ABACAVIR
     Indication: HIV INFECTION
  4. RALTEGRAVIR. [Suspect]
     Active Substance: RALTEGRAVIR
     Indication: HIV TEST POSITIVE
     Dosage: UNK
     Route: 048
  5. LAMIVUDINE. [Suspect]
     Active Substance: LAMIVUDINE
     Indication: HIV TEST POSITIVE
     Dosage: UNK
  6. LAMIVUDINE. [Suspect]
     Active Substance: LAMIVUDINE
     Indication: HIV INFECTION

REACTIONS (5)
  - Drug resistance [Unknown]
  - Treatment noncompliance [Unknown]
  - Treatment failure [Unknown]
  - Pathogen resistance [Unknown]
  - Viral mutation identified [Unknown]
